FAERS Safety Report 7322460-9 (Version None)
Quarter: 2011Q1

REPORT INFORMATION
  Report Type: 
  Country: None (occurrence: None)
  Receive Date: 20110125
  Receipt Date: 20100702
  Transmission Date: 20110831
  Serious: No
  Sender: FDA-Public Use
  Company Number: US-003111

PATIENT
  Sex: Male
  Weight: 92.5338 kg

DRUGS (8)
  1. FIRMAGON [Suspect]
     Indication: PROSTATE CANCER
     Dosage: (240 MG 1X SUBCUTANEOUS), (80 MG 1X/MONTH SUBCUTANEOUS)
     Route: 058
     Dates: start: 20100629, end: 20100629
  2. FIRMAGON [Suspect]
     Indication: PROSTATE CANCER
     Dosage: (240 MG 1X SUBCUTANEOUS), (80 MG 1X/MONTH SUBCUTANEOUS)
     Route: 058
     Dates: start: 20100727, end: 20100924
  3. LISINOPRIL [Concomitant]
  4. TYLENOL (CAPLET) [Concomitant]
  5. ASPIRIN [Concomitant]
  6. PRILOSEC [Concomitant]
  7. ZOCOR [Concomitant]
  8. NORVASC [Concomitant]

REACTIONS (2)
  - INJECTION SITE ERYTHEMA [None]
  - INJECTION SITE INDURATION [None]
